FAERS Safety Report 5464904-3 (Version None)
Quarter: 2007Q3

REPORT INFORMATION
  Report Type: 
  Country: None (occurrence: None)
  Receive Date: 20070921
  Receipt Date: 20070911
  Transmission Date: 20080115
  Serious: Yes (Other)
  Sender: FDA-Public Use
  Company Number: US-PFIZER INC-2007076437

PATIENT
  Sex: Female
  Weight: 46 kg

DRUGS (3)
  1. LIPITOR [Suspect]
     Indication: BLOOD CHOLESTEROL
     Dates: start: 20070101, end: 20070601
  2. AROMASIN [Suspect]
     Indication: BREAST CANCER
  3. ANASTROZOLE [Suspect]
     Dates: start: 20070101, end: 20070601

REACTIONS (6)
  - ARTHRITIS [None]
  - BREAST CANCER [None]
  - COUGH [None]
  - HEPATIC ENZYME INCREASED [None]
  - MUSCLE SPASMS [None]
  - PAIN IN EXTREMITY [None]
